FAERS Safety Report 6038837-8 (Version None)
Quarter: 2009Q1

REPORT INFORMATION
  Report Type: 
  Country: None (occurrence: None)
  Receive Date: 20090115
  Receipt Date: 20080814
  Transmission Date: 20090719
  Serious: No
  Sender: FDA-Public Use
  Company Number: US-BAYER-200813426BCC

PATIENT
  Age: 56 Year
  Sex: Female

DRUGS (2)
  1. ALEVE [Suspect]
     Indication: SINUS HEADACHE
     Dosage: TOTAL DAILY DOSE: 220 MG  UNIT DOSE: 220 MG
     Route: 048
  2. ZYRTEC [Concomitant]

REACTIONS (1)
  - FOREIGN BODY TRAUMA [None]
